FAERS Safety Report 25114100 (Version 1)
Quarter: 2025Q1

REPORT INFORMATION
  Report Type: Spontaneous
  Country: FR (occurrence: FR)
  Receive Date: 20250324
  Receipt Date: 20250324
  Transmission Date: 20250409
  Serious: Yes (Death, Other)
  Sender: ALEXION PHARMACEUTICALS
  Company Number: FR-AstraZeneca-CH-00831138A

PATIENT

DRUGS (2)
  1. OLAPARIB [Suspect]
     Active Substance: OLAPARIB
     Route: 065
  2. BEVACIZUMAB [Suspect]
     Active Substance: BEVACIZUMAB
     Route: 065

REACTIONS (5)
  - Sepsis [Fatal]
  - Neutropenia [Fatal]
  - Thrombocytopenia [Fatal]
  - Anaemia [Fatal]
  - Leukaemia [Fatal]
